FAERS Safety Report 8037317-8 (Version None)
Quarter: 2012Q1

REPORT INFORMATION
  Report Type: 
  Country: None (occurrence: None)
  Receive Date: 20120111
  Receipt Date: 20120105
  Transmission Date: 20120608
  Serious: Yes (Hospitalization, Disabling)
  Sender: FDA-Public Use
  Company Number: US-MERCK-1108USA01140

PATIENT
  Age: 57 Year
  Sex: Female

DRUGS (3)
  1. VITAMIN D (UNSPECIFIED) [Concomitant]
     Route: 048
     Dates: start: 20010101
  2. FOSAMAX [Suspect]
     Indication: OSTEOPOROSIS
     Route: 048
     Dates: start: 20010801, end: 20100223
  3. VITAMINS (UNSPECIFIED) [Concomitant]
     Route: 048
     Dates: start: 20010101

REACTIONS (5)
  - VERTIGO [None]
  - VITAMIN D DEFICIENCY [None]
  - OXYGEN SATURATION DECREASED [None]
  - POOR QUALITY SLEEP [None]
  - FEMUR FRACTURE [None]
